FAERS Safety Report 19933207 (Version 2)
Quarter: 2021Q4

REPORT INFORMATION
  Report Type: Spontaneous
  Country: US (occurrence: US)
  Receive Date: 20211008
  Receipt Date: 20211118
  Transmission Date: 20220303
  Serious: No
  Sender: FDA-Public Use
  Company Number: US-PFIZER INC-202101045222

PATIENT
  Age: 13 Year
  Sex: Male

DRUGS (1)
  1. GENOTROPIN [Suspect]
     Active Substance: SOMATROPIN
     Indication: Growth hormone deficiency
     Dosage: 2.8 MG, 1X/DAY (2.8 MG EVERY NIGHT)
     Dates: start: 2019

REACTIONS (3)
  - COVID-19 [Unknown]
  - Device information output issue [Unknown]
  - Device breakage [Unknown]
